FAERS Safety Report 4290165-7 (Version None)
Quarter: 2004Q1

REPORT INFORMATION
  Report Type: 
  Country: None (occurrence: None)
  Receive Date: 20040209
  Receipt Date: 20040126
  Transmission Date: 20041129
  Serious: Yes (Hospitalization)
  Sender: FDA-Public Use
  Company Number: TPG2003A00291

PATIENT
  Age: 73 Year
  Sex: Female

DRUGS (9)
  1. ACTOS [Suspect]
     Indication: DIABETES MELLITUS NON-INSULIN-DEPENDENT
     Dosage: PER ORAL
     Route: 048
     Dates: start: 20030703, end: 20030821
  2. ACTOS [Suspect]
     Indication: DIABETES MELLITUS NON-INSULIN-DEPENDENT
     Dosage: PER ORAL
     Route: 048
     Dates: start: 20030830
  3. APROVEL (IRBESARTAN) [Concomitant]
  4. NITREN (NITRENDIPINE) [Concomitant]
  5. DICLOPHLOGONT (DICLOFENAC SODIUM) [Concomitant]
  6. CAPTOPRIL [Concomitant]
  7. INSULIN PROTAPHAN (INSULIN HUMAN) [Concomitant]
  8. INSULIN ACTRAPID HUMAN (INSULIN HUMAN) [Concomitant]
  9. ATENOLOL [Concomitant]

REACTIONS (5)
  - ATRIAL FIBRILLATION [None]
  - CONDUCTION DISORDER [None]
  - CORONARY ARTERY DISEASE [None]
  - HYPERTENSIVE HEART DISEASE [None]
  - VENTRICULAR HYPOKINESIA [None]
